FAERS Safety Report 23061747 (Version 1)
Quarter: 2023Q4

REPORT INFORMATION
  Report Type: Spontaneous
  Country: CN (occurrence: HK)
  Receive Date: 20231013
  Receipt Date: 20231013
  Transmission Date: 20240109
  Serious: Yes (Death, Hospitalization, Other)
  Sender: FDA-Public Use
  Company Number: CN-009507513-2310HKG002173

PATIENT
  Age: 71 Year
  Sex: Male

DRUGS (3)
  1. PEMBROLIZUMAB [Suspect]
     Active Substance: PEMBROLIZUMAB
     Indication: T-cell lymphoma stage IV
     Dosage: 200 MILLIGRAM, EVERY 4 WEEKS; 13 DOSES
     Dates: start: 202103, end: 202201
  2. PEMBROLIZUMAB [Suspect]
     Active Substance: PEMBROLIZUMAB
     Indication: Renal cell carcinoma
  3. PEMBROLIZUMAB [Suspect]
     Active Substance: PEMBROLIZUMAB
     Indication: Small cell lung cancer

REACTIONS (5)
  - Immune-mediated myocarditis [Fatal]
  - Facial paresis [Unknown]
  - Immune-mediated hypothyroidism [Unknown]
  - Immune-mediated adrenal insufficiency [Unknown]
  - Product use in unapproved indication [Unknown]

NARRATIVE: CASE EVENT DATE: 20210301
